FAERS Safety Report 6276134-6 (Version None)
Quarter: 2009Q3

REPORT INFORMATION
  Report Type: 
  Country: None (occurrence: None)
  Receive Date: 20090720
  Receipt Date: 20090720
  Transmission Date: 20100115
  Serious: Yes (Other)
  Sender: FDA-Public Use
  Company Number: None

PATIENT
  Sex: Female

DRUGS (2)
  1. ADDERALL 10 [Suspect]
     Indication: ATTENTION DEFICIT/HYPERACTIVITY DISORDER
     Dosage: 40 MG PO QAM
     Route: 048
     Dates: start: 20020401
  2. ADDERALL XR 10 [Suspect]
     Indication: ATTENTION DEFICIT/HYPERACTIVITY DISORDER
     Dosage: 60 MG QAM AND 40 QPM
     Dates: start: 20020401

REACTIONS (5)
  - ABDOMINAL DISCOMFORT [None]
  - AFFECT LABILITY [None]
  - AFFECTIVE DISORDER [None]
  - NAUSEA [None]
  - PRODUCT SUBSTITUTION ISSUE [None]
